FAERS Safety Report 9331464 (Version 2)
Quarter: 2013Q2

REPORT INFORMATION
  Report Type: Report from Study
  Country: US (occurrence: US)
  Receive Date: 20130605
  Receipt Date: 20130614
  Transmission Date: 20140414
  Serious: Yes (Other)
  Sender: FDA-Public Use
  Company Number: US-ABBOTT-13P-163-1098535-00

PATIENT
  Age: 58 Year
  Sex: Female
  Weight: 48.58 kg

DRUGS (3)
  1. HUMIRA [Suspect]
     Indication: RHEUMATOID ARTHRITIS
     Dosage: 40 MG (0.8 ML) EVERY TWO WEEKS
     Route: 058
  2. HUMIRA [Suspect]
     Dates: start: 20130601
  3. ATENOLOL [Concomitant]
     Indication: PRODUCT USED FOR UNKNOWN INDICATION

REACTIONS (1)
  - Carpal tunnel syndrome [Recovering/Resolving]
